FAERS Safety Report 21344301 (Version 1)
Quarter: 2022Q3

REPORT INFORMATION
  Report Type: Report from Study
  Country: US (occurrence: US)
  Receive Date: 20220916
  Receipt Date: 20220916
  Transmission Date: 20221027
  Serious: Yes (Hospitalization)
  Sender: FDA-Public Use
  Company Number: US-Vifor (International) Inc.-VIT-2021-02144

PATIENT
  Age: 81 Year
  Sex: Female

DRUGS (2)
  1. VELTASSA [Suspect]
     Active Substance: PATIROMER
     Indication: Hyperkalaemia
     Route: 048
  2. VELTASSA [Suspect]
     Active Substance: PATIROMER
     Route: 048

REACTIONS (2)
  - Hospitalisation [Recovered/Resolved]
  - Faeces hard [Unknown]

NARRATIVE: CASE EVENT DATE: 20220831
